FAERS Safety Report 5141666-0 (Version None)
Quarter: 2006Q4

REPORT INFORMATION
  Report Type: 
  Country: None (occurrence: None)
  Receive Date: 20061026
  Receipt Date: 20061018
  Transmission Date: 20070319
  Serious: Yes (Other)
  Sender: FDA-Public Use
  Company Number: OSCN-PR-0609S-0269

PATIENT
  Age: 36 Year
  Sex: Male

DRUGS (2)
  1. OMNISCAN [Suspect]
     Indication: RENAL TRANSPLANT
     Dosage: 40 ML, SINGLE DOSE
  2. SEVERAL UNSPECIFIED MEDICATIONS [Concomitant]

REACTIONS (4)
  - ERYTHEMA [None]
  - JOINT RANGE OF MOTION DECREASED [None]
  - RENAL TRANSPLANT [None]
  - SKIN FIBROSIS [None]
